FAERS Safety Report 16879169 (Version 4)
Quarter: 2020Q1

REPORT INFORMATION
  Report Type: Spontaneous
  Country: US (occurrence: US)
  Receive Date: 20191003
  Receipt Date: 20200114
  Transmission Date: 20200409
  Serious: Yes (Death, Hospitalization)
  Sender: FDA-Public Use
  Company Number: US-ROCHE-2421469

PATIENT
  Sex: Male
  Weight: 66.9 kg

DRUGS (32)
  1. HEMLIBRA [Suspect]
     Active Substance: EMICIZUMAB-KXWH
     Route: 058
  2. CARAFATE [Concomitant]
     Active Substance: SUCRALFATE
     Route: 048
  3. FUROSEMIDE. [Concomitant]
     Active Substance: FUROSEMIDE
     Route: 048
  4. HUMALOG [Concomitant]
     Active Substance: INSULIN LISPRO
     Route: 058
  5. LACTATED RINGERS SOLUTION [Concomitant]
     Active Substance: CALCIUM CHLORIDE\POTASSIUM CHLORIDE\SODIUM CHLORIDE\SODIUM LACTATE
     Route: 042
  6. MORPHINE [Concomitant]
     Active Substance: MORPHINE
     Route: 048
  7. PROMACTA [Concomitant]
     Active Substance: ELTROMBOPAG OLAMINE
     Route: 048
  8. ZOFRAN [Concomitant]
     Active Substance: ONDANSETRON HYDROCHLORIDE
     Route: 042
  9. ESOMEPRAZOLE. [Concomitant]
     Active Substance: ESOMEPRAZOLE MAGNESIUM
  10. SUCRALFATE. [Concomitant]
     Active Substance: SUCRALFATE
     Route: 048
  11. DEXTROSE. [Concomitant]
     Active Substance: DEXTROSE
     Dosage: 12.5 GM PER 25 ML
     Route: 042
  12. LASIX [Concomitant]
     Active Substance: FUROSEMIDE
     Route: 048
  13. NICOTINE. [Concomitant]
     Active Substance: NICOTINE
     Route: 062
  14. DEXTROSE. [Concomitant]
     Active Substance: DEXTROSE
     Route: 042
  15. ROCEPHIN [Concomitant]
     Active Substance: CEFTRIAXONE SODIUM
     Route: 042
  16. ALDACTONE [Concomitant]
     Active Substance: SPIRONOLACTONE
  17. DILAUDID [Concomitant]
     Active Substance: HYDROMORPHONE HYDROCHLORIDE
     Indication: OSTEOARTHRITIS
  18. FLONASE [Concomitant]
     Active Substance: FLUTICASONE PROPIONATE
     Dosage: 50 MCG PER INHALATION
     Route: 045
  19. PANTOPRAZOLE [Concomitant]
     Active Substance: PANTOPRAZOLE
     Route: 042
  20. CILASTATIN [Concomitant]
     Active Substance: CILASTATIN
  21. MS CONTIN [Concomitant]
     Active Substance: MORPHINE SULFATE
  22. PIOGLITAZONE. [Concomitant]
     Active Substance: PIOGLITAZONE
  23. KOGENATE [Suspect]
     Active Substance: ANTIHEMOPHILIC FACTOR, HUMAN RECOMBINANT
     Indication: FACTOR VIII DEFICIENCY
     Route: 065
  24. RIFAXIMINE [Concomitant]
     Active Substance: RIFAXIMIN
     Route: 048
  25. INSULIN LISPRO [Concomitant]
     Active Substance: INSULIN LISPRO
     Route: 058
  26. ONDANSETRON [Concomitant]
     Active Substance: ONDANSETRON
     Dosage: 4 MG/2ML
     Route: 042
  27. OCTREOTIDE. [Concomitant]
     Active Substance: OCTREOTIDE
  28. HEMLIBRA [Suspect]
     Active Substance: EMICIZUMAB-KXWH
     Indication: FACTOR VIII DEFICIENCY
     Dosage: DATE OF MOST RECENT DOSE OF THE HEMLIBRA (THIRD LOADING DOSE): 13/SEP/2019?150 MG/ML
     Route: 058
  29. DILAUDID [Concomitant]
     Active Substance: HYDROMORPHONE HYDROCHLORIDE
     Indication: PAIN
     Dosage: 1 MG/ 1 ML
     Route: 042
  30. GLUCAGON. [Concomitant]
     Active Substance: GLUCAGON
     Route: 030
  31. POTASSIUM CHLORIDE. [Concomitant]
     Active Substance: POTASSIUM CHLORIDE
     Route: 048
  32. PROPRANOLOL [Concomitant]
     Active Substance: PROPRANOLOL HYDROCHLORIDE
     Route: 048

REACTIONS (8)
  - Metabolic acidosis [Fatal]
  - Blood loss anaemia [Fatal]
  - Acute myocardial infarction [Fatal]
  - Shock haemorrhagic [Fatal]
  - Cardiogenic shock [Fatal]
  - Hypoxic-ischaemic encephalopathy [Unknown]
  - Oesophageal varices haemorrhage [Fatal]
  - Metabolic encephalopathy [Unknown]
